FAERS Safety Report 16196341 (Version 1)
Quarter: 2019Q2

REPORT INFORMATION
  Report Type: Spontaneous
  Country: US (occurrence: US)
  Receive Date: 20190415
  Receipt Date: 20190415
  Transmission Date: 20190711
  Serious: No
  Sender: FDA-Public Use
  Company Number: US-BAYER-2019-074281

PATIENT

DRUGS (3)
  1. ALPRAZOLAM. [Concomitant]
     Active Substance: ALPRAZOLAM
     Dosage: 0.5 MG, QID,PRN
  2. ALEVE [Suspect]
     Active Substance: NAPROXEN SODIUM
  3. LYRICA [Concomitant]
     Active Substance: PREGABALIN
     Dosage: 75 MG, TID

REACTIONS (4)
  - Urticaria [None]
  - Anxiety [None]
  - Drug hypersensitivity [None]
  - Rash [None]
